FAERS Safety Report 26111595 (Version 1)
Quarter: 2025Q4

REPORT INFORMATION
  Report Type: Spontaneous
  Country: EU (occurrence: EU)
  Receive Date: 20251202
  Receipt Date: 20251202
  Transmission Date: 20260118
  Serious: Yes (Hospitalization)
  Sender: RANBAXY
  Company Number: EU-AFSSAPS-AN2025001065

PATIENT
  Age: 66 Year
  Sex: Female
  Weight: 83 kg

DRUGS (14)
  1. ALFUZOSIN [Suspect]
     Active Substance: ALFUZOSIN
     Indication: Bladder sphincter atony
     Dosage: 10 MILLIGRAM, DAILY
     Route: 048
  2. ATORVASTATIN [Suspect]
     Active Substance: ATORVASTATIN
     Indication: Cardiovascular event prophylaxis
     Dosage: 40 MILLIGRAM, DAILY
     Route: 048
  3. ACETAMINOPHEN [Suspect]
     Active Substance: ACETAMINOPHEN
     Indication: Pain
     Dosage: 1 GRAM, 1DOSE/ASNECESSA
     Route: 048
  4. ULTOMIRIS [Suspect]
     Active Substance: RAVULIZUMAB-CWVZ
     Indication: Neuromyelitis optica spectrum disorder
     Dosage: 3300 MILLIGRAM, 1DOSE/ 6WEEKS
     Route: 040
     Dates: start: 20240926, end: 20250728
  5. DULOXETINE [Suspect]
     Active Substance: DULOXETINE
     Indication: Neuralgia
     Dosage: 60 MILLIGRAM, DAILY
     Route: 048
  6. LYRICA [Suspect]
     Active Substance: PREGABALIN
     Indication: Neuralgia
     Dosage: 450 MILLIGRAM, DAILY
     Route: 048
  7. BACLOFEN [Suspect]
     Active Substance: BACLOFEN
     Indication: Paraparesis
     Dosage: 75 MILLIGRAM, DAILY
     Route: 048
  8. RIVOTRIL [Suspect]
     Active Substance: CLONAZEPAM
     Indication: Paraparesis
     Dosage: 4 GTT DROPS, DAILY
     Route: 048
  9. LEVOTHYROXINE [Suspect]
     Active Substance: LEVOTHYROXINE
     Indication: Hypothyroidism
     Dosage: 112 MCG, DAILY
     Route: 048
  10. CYANOCOBALAMIN [Suspect]
     Active Substance: CYANOCOBALAMIN
     Indication: Vitamin supplementation
     Dosage: 1 DOSAGE FORM
     Route: 048
  11. PENICILLIN V [Suspect]
     Active Substance: PENICILLIN V
     Indication: Prophylaxis
     Dosage: 2 DOSAGE FORM, DAILY
     Route: 048
  12. CHOLECALCIFEROL [Suspect]
     Active Substance: CHOLECALCIFEROL
     Indication: Prophylaxis
     Dosage: 1 DOSAGE FORM, MONTHLY
     Route: 048
  13. POLYETHYLENE GLYCOLS [Suspect]
     Active Substance: POLYETHYLENE GLYCOLS
     Indication: Constipation
     Dosage: 1 DOSAGE FORM, DAILY
     Route: 048
  14. CLOPIDOGREL BISULFATE [Concomitant]
     Active Substance: CLOPIDOGREL BISULFATE
     Indication: Cardiovascular event prophylaxis
     Dosage: 75 MILLIGRAM, DAILY
     Route: 048

REACTIONS (1)
  - Ischaemic stroke [Recovering/Resolving]

NARRATIVE: CASE EVENT DATE: 20250806
